FAERS Safety Report 6497616-8 (Version None)
Quarter: 2009Q4

REPORT INFORMATION
  Report Type: 
  Country: None (occurrence: None)
  Receive Date: 20091125
  Receipt Date: 20090304
  Transmission Date: 20100525
  Serious: Yes (Hospitalization)
  Sender: FDA-Public Use
  Company Number: 2009BH003702

PATIENT
  Age: 78 Year
  Sex: Female

DRUGS (8)
  1. DIANEAL [Suspect]
     Indication: PERITONEAL DIALYSIS
     Dosage: 10 L;EVERY DAY;IP
     Route: 033
     Dates: start: 20070205, end: 20090309
  2. INSULIN [Concomitant]
  3. VITAMINS [Concomitant]
  4. LISINOPRIL [Concomitant]
  5. PROZOSYN [Concomitant]
  6. SYNTHROID [Concomitant]
  7. VERAPAMIL [Concomitant]
  8. ZOCOR [Concomitant]

REACTIONS (3)
  - PERITONEAL DIALYSIS COMPLICATION [None]
  - PERITONITIS BACTERIAL [None]
  - VOMITING [None]
